FAERS Safety Report 6874484-3 (Version None)
Quarter: 2010Q3

REPORT INFORMATION
  Report Type: 
  Country: None (occurrence: None)
  Receive Date: 20100723
  Receipt Date: 20100723
  Transmission Date: 20110219
  Serious: Yes (Life-Threatening, Other)
  Sender: FDA-Public Use
  Company Number: None

PATIENT
  Age: 36 Year
  Sex: Female
  Weight: 54.4316 kg

DRUGS (1)
  1. AMNESTEEM [Suspect]
     Indication: ACNE
     Dates: start: 20100716, end: 20100721

REACTIONS (6)
  - ABDOMINAL DISTENSION [None]
  - ARTHRALGIA [None]
  - CONVULSION [None]
  - FATIGUE [None]
  - SKIN BURNING SENSATION [None]
  - TINNITUS [None]
